FAERS Safety Report 7359668-2 (Version None)
Quarter: 2011Q1

REPORT INFORMATION
  Report Type: 
  Country: None (occurrence: None)
  Receive Date: 20110317
  Receipt Date: 20100716
  Transmission Date: 20110831
  Serious: No
  Sender: FDA-Public Use
  Company Number: US-PFIZER INC-2010089865

PATIENT
  Age: 84 Year
  Sex: Female

DRUGS (4)
  1. NORVASC [Suspect]
     Dosage: UNK
  2. PRAVACHOL [Suspect]
     Dosage: UNK
  3. VESICARE [Suspect]
     Dosage: 5 MG, 1X/DAY, UID
     Route: 048
     Dates: start: 20060101
  4. METOPROLOL [Suspect]
     Dosage: UNK

REACTIONS (3)
  - DIZZINESS [None]
  - DRY MOUTH [None]
  - VISION BLURRED [None]
